FAERS Safety Report 6023488-1 (Version None)
Quarter: 2008Q4

REPORT INFORMATION
  Report Type: 
  Country: None (occurrence: None)
  Receive Date: 20081230
  Receipt Date: 20081219
  Transmission Date: 20090506
  Serious: No
  Sender: FDA-Public Use
  Company Number: US-MERCK-0612USA03904

PATIENT
  Age: 72 Year
  Sex: Male

DRUGS (6)
  1. ZOCOR [Suspect]
     Indication: HYPERLIPIDAEMIA
     Route: 048
  2. ZOCOR [Suspect]
     Route: 048
     Dates: start: 20020501, end: 20020501
  3. FELODIPINE [Concomitant]
     Indication: HYPERTENSION
     Route: 065
     Dates: start: 20030301, end: 20031101
  4. PRINIVIL [Concomitant]
     Indication: HYPERTENSION
     Route: 048
     Dates: start: 20020401
  5. LANOXIN [Concomitant]
     Indication: CARDIAC DISORDER
     Route: 065
     Dates: start: 20031201, end: 20040901
  6. VIOXX [Concomitant]
     Indication: ARTHRITIS
     Route: 048
     Dates: start: 20020101, end: 20040901

REACTIONS (3)
  - HYPERSENSITIVITY [None]
  - MUSCULOSKELETAL DISCOMFORT [None]
  - MYALGIA [None]
